FAERS Safety Report 24927286 (Version 2)
Quarter: 2025Q1

REPORT INFORMATION
  Report Type: Spontaneous
  Country: PR (occurrence: PR)
  Receive Date: 20250205
  Receipt Date: 20250210
  Transmission Date: 20250409
  Serious: No
  Sender: BRISTOL-MYERS SQUIBB COMPANY
  Company Number: PR-BRISTOL-MYERS SQUIBB COMPANY-2025-016963

PATIENT
  Age: 82 Year
  Sex: Male

DRUGS (1)
  1. REVLIMID [Suspect]
     Active Substance: LENALIDOMIDE
     Indication: Plasma cell myeloma
     Route: 048
     Dates: start: 202501

REACTIONS (4)
  - Diarrhoea [Unknown]
  - Decreased appetite [Unknown]
  - Abdominal discomfort [Unknown]
  - White blood cell count decreased [Unknown]
